FAERS Safety Report 6637422-4 (Version None)
Quarter: 2010Q1

REPORT INFORMATION
  Report Type: 
  Country: None (occurrence: None)
  Receive Date: 20100311
  Receipt Date: 20100226
  Transmission Date: 20100710
  Serious: Yes (Other)
  Sender: FDA-Public Use
  Company Number: ALA_00434_2010

PATIENT
  Age: 11 Year
  Sex: Female

DRUGS (2)
  1. MESALAMINE [Suspect]
     Indication: COLITIS ULCERATIVE
     Dosage: (2000 MG QD)
  2. SULFASALAZINE [Suspect]
     Indication: COLITIS ULCERATIVE
     Dosage: (DF)

REACTIONS (7)
  - COLECTOMY [None]
  - DRUG HYPERSENSITIVITY [None]
  - ELECTROCARDIOGRAM ST-T CHANGE [None]
  - MUSCLE NECROSIS [None]
  - MYOPATHY TOXIC [None]
  - MYOSITIS [None]
  - PHAGOCYTOSIS [None]
